FAERS Safety Report 5140253-8 (Version None)
Quarter: 2006Q4

REPORT INFORMATION
  Report Type: 
  Country: None (occurrence: None)
  Receive Date: 20061025
  Receipt Date: 20061017
  Transmission Date: 20070319
  Serious: Yes (Life-Threatening, Hospitalization, Other)
  Sender: FDA-Public Use
  Company Number: 2006SP003848

PATIENT
  Age: 37 Year
  Sex: Male
  Weight: 99.7913 kg

DRUGS (1)
  1. ASMANEX TWISTHALER [Suspect]
     Indication: ASTHMA
     Dosage: 1 DF;NAS
     Route: 055
     Dates: start: 20060911, end: 20060918

REACTIONS (1)
  - CONVULSION [None]
